FAERS Safety Report 6806053-5 (Version None)
Quarter: 2010Q2

REPORT INFORMATION
  Report Type: 
  Country: None (occurrence: None)
  Receive Date: 20100629
  Receipt Date: 20071203
  Transmission Date: 20101027
  Serious: No
  Sender: FDA-Public Use
  Company Number: US-PFIZER INC-2007102771

PATIENT
  Sex: Female
  Weight: 63.6 kg

DRUGS (4)
  1. ARTHROTEC [Suspect]
     Indication: PLANTAR FASCIITIS
     Dates: start: 20070911, end: 20071001
  2. VASOTEC [Concomitant]
  3. PREMARIN [Concomitant]
  4. NEXIUM [Concomitant]

REACTIONS (6)
  - ALOPECIA [None]
  - DANDRUFF [None]
  - DRY SKIN [None]
  - ORAL DISORDER [None]
  - PRURITUS [None]
  - RASH [None]
